FAERS Safety Report 15504523 (Version 1)
Quarter: 2018Q4

REPORT INFORMATION
  Report Type: Spontaneous
  Country: US (occurrence: US)
  Receive Date: 20181009
  Receipt Date: 20181009
  Transmission Date: 20190205
  Serious: Yes (Hospitalization)
  Sender: FDA-Public Use
  Company Number: None

PATIENT
  Age: 76 Year
  Sex: Female
  Weight: 85.2 kg

DRUGS (2)
  1. ASPIRIN. [Suspect]
     Active Substance: ASPIRIN
     Indication: ATRIAL FIBRILLATION
     Route: 048
  2. APIXABAN [Concomitant]
     Active Substance: APIXABAN

REACTIONS (2)
  - Lower gastrointestinal haemorrhage [None]
  - Haematochezia [None]

NARRATIVE: CASE EVENT DATE: 20181006
